FAERS Safety Report 9709724 (Version 3)
Quarter: 2014Q1

REPORT INFORMATION
  Report Type: Spontaneous
  Country: GB (occurrence: GB)
  Receive Date: 20131126
  Receipt Date: 20140128
  Transmission Date: 20141002
  Serious: Yes (Hospitalization)
  Sender: FDA-Public Use
  Company Number: GB-JNJFOC-20131003925

PATIENT
  Age: 64 Year
  Sex: Male

DRUGS (2)
  1. DAKTARIN [Suspect]
     Route: 061
  2. DAKTARIN [Suspect]
     Indication: TINEA PEDIS
     Route: 061

REACTIONS (2)
  - Cellulitis [Recovered/Resolved]
  - Drug ineffective [Recovering/Resolving]
